FAERS Safety Report 23386745 (Version 1)
Quarter: 2024Q1

REPORT INFORMATION
  Report Type: Spontaneous
  Country: US (occurrence: US)
  Receive Date: 20240110
  Receipt Date: 20240110
  Transmission Date: 20240410
  Serious: No
  Sender: FDA-Public Use
  Company Number: US-CATALYST PHARMACEUTICALS, INC-US-CATA-23-00391

PATIENT
  Sex: Female

DRUGS (1)
  1. FIRDAPSE [Suspect]
     Active Substance: AMIFAMPRIDINE PHOSPHATE
     Indication: Myasthenic syndrome
     Dosage: 20 MILLIGRAM, QID
     Route: 048
     Dates: start: 201902

REACTIONS (9)
  - Blood pressure abnormal [Unknown]
  - Ear pain [Recovered/Resolved]
  - Chest discomfort [Recovered/Resolved]
  - Swelling [Recovered/Resolved]
  - Fatigue [Recovered/Resolved]
  - Hypoaesthesia [Recovered/Resolved]
  - Hypertension [Recovered/Resolved]
  - Dizziness [Recovered/Resolved]
  - Paraesthesia [Recovered/Resolved]
